FAERS Safety Report 6139435-8 (Version None)
Quarter: 2009Q2

REPORT INFORMATION
  Report Type: 
  Country: None (occurrence: None)
  Receive Date: 20090401
  Receipt Date: 20090326
  Transmission Date: 20091009
  Serious: Yes (Hospitalization)
  Sender: FDA-Public Use
  Company Number: PHHY2009US11430

PATIENT
  Age: 54 Year
  Sex: Male

DRUGS (2)
  1. CYCLOSPORINE [Suspect]
     Indication: HEART TRANSPLANT
  2. AZATHIOPRINE [Suspect]
     Indication: HEART TRANSPLANT

REACTIONS (4)
  - HEADACHE [None]
  - HUMAN EHRLICHIOSIS [None]
  - NAUSEA [None]
  - PYREXIA [None]
